FAERS Safety Report 21801035 (Version 1)
Quarter: 2022Q4

REPORT INFORMATION
  Report Type: Report from Study
  Country: PR (occurrence: PR)
  Receive Date: 20221230
  Receipt Date: 20221230
  Transmission Date: 20230113
  Serious: No
  Sender: FDA-Public Use
  Company Number: PR-ABBVIE-4220749

PATIENT
  Sex: Male
  Weight: 107 kg

DRUGS (9)
  1. HUMIRA [Suspect]
     Active Substance: ADALIMUMAB
     Indication: Psoriatic arthropathy
     Dosage: FORM STRENGTH: 40 MILLIGRAM
     Route: 058
     Dates: start: 20191007
  2. CARBIDOPA [Concomitant]
     Active Substance: CARBIDOPA
     Indication: Parkinson^s disease
     Dosage: 50/200MG
  3. METOPROLOL [Concomitant]
     Active Substance: METOPROLOL
     Indication: Blood pressure measurement
     Dosage: FORM STRENGTH: 100 MILLIGRAM
  4. LISINOPRIL [Concomitant]
     Active Substance: LISINOPRIL
     Indication: Product used for unknown indication
     Dosage: FORM STRENGTH: 20 MILLIGRAM
  5. Covid-19 Vaccine [Concomitant]
     Indication: COVID-19
     Dosage: 1ST DOSE/1 IN ONCE
     Route: 030
  6. Covid-19 Vaccine [Concomitant]
     Indication: COVID-19
     Dosage: 2ND DOSE/1 IN ONCE
     Route: 030
  7. Covid-19 Vaccine [Concomitant]
     Indication: COVID-19
     Dosage: 3RD DOSE/1 IN ONCE
     Route: 030
     Dates: start: 202211, end: 202211
  8. GLIPIZIDE [Concomitant]
     Active Substance: GLIPIZIDE
     Indication: Diabetes mellitus
     Dosage: FORM STRENGTH: 10 MILLIGRAM
  9. METFORMIN [Concomitant]
     Active Substance: METFORMIN HYDROCHLORIDE
     Indication: Diabetes mellitus
     Dosage: FORM STRENGTH: 1000 MILLIGRAM

REACTIONS (1)
  - Nasopharyngitis [Not Recovered/Not Resolved]
